FAERS Safety Report 17286622 (Version 1)
Quarter: 2020Q1

REPORT INFORMATION
  Report Type: Spontaneous
  Country: US (occurrence: US)
  Receive Date: 20200119
  Receipt Date: 20200119
  Transmission Date: 20200409
  Serious: No
  Sender: FDA-Public Use
  Company Number: US-009507513-2001USA005812

PATIENT

DRUGS (1)
  1. ZOCOR [Suspect]
     Active Substance: SIMVASTATIN

REACTIONS (3)
  - Drug hypersensitivity [Unknown]
  - Myalgia [Unknown]
  - Arthralgia [Unknown]
